FAERS Safety Report 10818199 (Version 4)
Quarter: 2016Q2

REPORT INFORMATION
  Report Type: Spontaneous
  Country: US (occurrence: US)
  Receive Date: 20150218
  Receipt Date: 20160510
  Transmission Date: 20160815
  Serious: Yes (Hospitalization, Congenital Anomaly, Other)
  Sender: FDA-Public Use
  Company Number: US-APOTEX-2015AP006577

PATIENT
  Age: 0 Day
  Sex: Male
  Weight: 3 kg

DRUGS (1)
  1. PAXIL [Suspect]
     Active Substance: PAROXETINE HYDROCHLORIDE
     Indication: DEPRESSION
     Dosage: DAILY
     Route: 064
     Dates: start: 19960501, end: 1996

REACTIONS (5)
  - Congenital Eustachian tube anomaly [Unknown]
  - Foetal exposure during pregnancy [Unknown]
  - Middle ear adhesions [Unknown]
  - Cleft lip and palate [Unknown]
  - Middle ear effusion [Unknown]

NARRATIVE: CASE EVENT DATE: 19970203
